FAERS Safety Report 6904328-2 (Version None)
Quarter: 2010Q3

REPORT INFORMATION
  Report Type: 
  Country: None (occurrence: None)
  Receive Date: 20100804
  Receipt Date: 20090427
  Transmission Date: 20110219
  Serious: Yes (Other)
  Sender: FDA-Public Use
  Company Number: US-PFIZER INC-2009182847

PATIENT
  Sex: Female
  Weight: 108.86 kg

DRUGS (15)
  1. LYRICA [Suspect]
     Indication: FIBROMYALGIA
     Dosage: UNK
     Dates: start: 20080701
  2. LYRICA [Suspect]
     Indication: BACK INJURY
  3. LYRICA [Suspect]
     Indication: OSTEOARTHRITIS
  4. PREDNISONE [Suspect]
     Indication: ILL-DEFINED DISORDER
  5. CALCIUM [Concomitant]
     Dosage: 1 MG, 2X/DAY
  6. MAGNESIUM [Concomitant]
     Dosage: 40 MG, 2X/DAY
  7. ZINC [Concomitant]
     Dosage: 6 MG, 2X/DAY
  8. VITAMIN TAB [Concomitant]
     Dosage: UNK
  9. EQUATE [Concomitant]
     Dosage: UNK
  10. OMEPRAZOLE [Concomitant]
     Dosage: 20 MG, 2X/DAY
  11. ALENDRONATE SODIUM [Concomitant]
     Dosage: UNK
  12. ROPINIROLE [Concomitant]
     Dosage: 1 MG, 1X/DAY AT NIGHT
  13. ALL OTHER THERAPEUTIC PRODUCTS [Concomitant]
     Dosage: 0.75 MG, UNK
  14. PREMARIN [Concomitant]
     Dosage: UNK
  15. SYMBICORT [Concomitant]
     Dosage: 160/4.5; TWO PUFFS TWO TIMES A DAY

REACTIONS (8)
  - FEELING ABNORMAL [None]
  - FUNGAL INFECTION [None]
  - LETHARGY [None]
  - OEDEMA PERIPHERAL [None]
  - PAIN [None]
  - RASH [None]
  - THYROID FUNCTION TEST ABNORMAL [None]
  - WEIGHT INCREASED [None]
